FAERS Safety Report 22360583 (Version 8)
Quarter: 2024Q3

REPORT INFORMATION
  Report Type: Spontaneous
  Country: US (occurrence: US)
  Receive Date: 20230524
  Receipt Date: 20240729
  Transmission Date: 20241017
  Serious: Yes (Other)
  Sender: PFIZER
  Company Number: US-PFIZER INC-PV202300091490

PATIENT
  Age: 72 Year
  Sex: Female
  Weight: 94.331 kg

DRUGS (1)
  1. ESTRING [Suspect]
     Active Substance: ESTRADIOL
     Dosage: 7.5 MCG/24 HOURS
     Route: 067

REACTIONS (1)
  - Carpal tunnel syndrome [Unknown]
